FAERS Safety Report 10021457 (Version 1)
Quarter: 2014Q1

REPORT INFORMATION
  Report Type: Spontaneous
  Country: US (occurrence: None)
  Receive Date: 20140318
  Receipt Date: 20140318
  Transmission Date: 20141002
  Serious: Yes (Other)
  Sender: FDA-Public Use
  Company Number: None

PATIENT
  Age: 24 Year
  Sex: Male
  Weight: 78.47 kg

DRUGS (1)
  1. MIRVASO GALDERMA [Suspect]
     Indication: ROSACEA
     Dosage: PEA SIZE AMOUNT?ONCE DAILY?APPLIED TO A SURFACE USUALLY THE SKIN
     Route: 061
     Dates: start: 20140113, end: 20140317

REACTIONS (2)
  - Rosacea [None]
  - Condition aggravated [None]
